FAERS Safety Report 6370581-X (Version None)
Quarter: 2009Q3

REPORT INFORMATION
  Report Type: 
  Country: None (occurrence: None)
  Receive Date: 20090923
  Receipt Date: 20090915
  Transmission Date: 20100115
  Serious: Yes (Hospitalization)
  Sender: FDA-Public Use
  Company Number: B0592883A

PATIENT
  Sex: Female

DRUGS (3)
  1. CLAMOXYL [Suspect]
     Route: 048
     Dates: start: 20090818, end: 20090818
  2. TIORFAN [Suspect]
     Route: 048
     Dates: start: 20090818, end: 20090818
  3. DAFALGAN [Concomitant]
     Dates: start: 20090818

REACTIONS (2)
  - ANGIOEDEMA [None]
  - ERYTHEMA MULTIFORME [None]
